FAERS Safety Report 5856058-6 (Version None)
Quarter: 2008Q3

REPORT INFORMATION
  Report Type: 
  Country: None (occurrence: None)
  Receive Date: 20080821
  Receipt Date: 20080821
  Transmission Date: 20090109
  Serious: No
  Sender: FDA-Public Use
  Company Number: None

PATIENT
  Sex: Male
  Weight: 68.5 kg

DRUGS (12)
  1. DOCETAXEL [Suspect]
     Dosage: 135 MG
  2. LEUPROLIDE ACETATE [Suspect]
     Dosage: 60 MG
  3. PREDNISONE TAB [Suspect]
     Dosage: 210 MG
  4. CASODEX [Suspect]
     Dosage: 5900 MG
  5. ASPIRIN [Concomitant]
  6. COMPAZINE [Concomitant]
  7. FOLIC ACID [Concomitant]
  8. LOPERAMIDE HCL [Concomitant]
  9. LOSARTAN POTASSIUM [Concomitant]
  10. TOPROL-XL [Concomitant]
  11. TYLENOL (CAPLET) [Concomitant]
  12. ZOCOR [Concomitant]

REACTIONS (1)
  - WHITE BLOOD CELL COUNT DECREASED [None]
